FAERS Safety Report 8146920-6 (Version None)
Quarter: 2012Q1

REPORT INFORMATION
  Report Type: 
  Country: None (occurrence: None)
  Receive Date: 20120217
  Receipt Date: 20120215
  Transmission Date: 20120608
  Serious: Yes (Death)
  Sender: FDA-Public Use
  Company Number: JP-ASTRAZENECA-2012SE06455

PATIENT
  Age: 28 Year
  Sex: Female

DRUGS (4)
  1. GANCICLOVIR [Suspect]
     Route: 042
     Dates: start: 20110603
  2. GANCICLOVIR [Suspect]
     Indication: ENCEPHALITIS CYTOMEGALOVIRUS
     Route: 042
     Dates: start: 20110518
  3. FOSCAVIR [Suspect]
     Indication: ENCEPHALITIS CYTOMEGALOVIRUS
     Route: 042
     Dates: start: 20110420
  4. FOSCAVIR [Suspect]
     Route: 042
     Dates: start: 20110603

REACTIONS (1)
  - ENCEPHALITIS CYTOMEGALOVIRUS [None]
